FAERS Safety Report 9595503 (Version 1)
Quarter: 2013Q3

REPORT INFORMATION
  Report Type: Spontaneous
  Country: US (occurrence: None)
  Receive Date: 20130927
  Receipt Date: 20130927
  Transmission Date: 20140515
  Serious: Yes (Hospitalization)
  Sender: FDA-Public Use
  Company Number: CABO-13002988

PATIENT
  Age: 81 Year
  Sex: Male

DRUGS (18)
  1. COMETRIQ (CABOZANTINIB) CAPSULE [Suspect]
     Indication: PROSTATE CANCER
     Dosage: 140 MG, QD, ORAL
     Route: 048
     Dates: start: 20130619, end: 20130702
  2. CENTRUM SILVER (ASCORBIC ACID, CALCIUM, MINERALS NOS, RETINOL, TOCOPHERYL ACETATE, VITAMIN B NOS, VITAMINS NOS, ZINC) [Concomitant]
  3. DIGOXIN (BETA-ACETYLDIGOXIN) [Concomitant]
  4. FUROSEMIDE (FUROSEMIDE SODIUM) [Concomitant]
  5. LEVEMIR (INSULIN DETEMIR) [Concomitant]
  6. LEVOTHYROXINE (LEVOTHYROXINE SODIUM) [Concomitant]
  7. METOPROLOL (METOPROLOL TARTRATE) [Concomitant]
  8. MIRALAX [Concomitant]
  9. MUCINEX [Concomitant]
  10. NOVOLOG (INSULIN ASPART) [Concomitant]
  11. OS-CAL (CALCIUM CARBONATE) [Concomitant]
  12. PRAVASTATIN (PRAVASTATIN SODIUM) [Concomitant]
  13. PROVIGIL (MODAFINIL) [Concomitant]
  14. UROXATRAL (ALFUZOSIN HYDROCHLORIDE) [Concomitant]
  15. VITAMIN B-12 (CYANOCOBALAMIN) [Concomitant]
  16. VITAMIN B-6 (PYRIDOXINE HYDROCHLORIDE) [Concomitant]
  17. WARFARIN (WARFARIN SODIUM) (TABLET) [Concomitant]
  18. ENZALUTAMIDE (ENZALUTAMIDE) [Concomitant]

REACTIONS (4)
  - Palmar-plantar erythrodysaesthesia syndrome [None]
  - Skin ulcer [None]
  - Gait disturbance [None]
  - Stomatitis [None]
